FAERS Safety Report 24540191 (Version 2)
Quarter: 2025Q3

REPORT INFORMATION
  Report Type: Spontaneous
  Country: JP (occurrence: JP)
  Receive Date: 20241023
  Receipt Date: 20250810
  Transmission Date: 20251020
  Serious: Yes (Hospitalization, Other)
  Sender: ALEXION PHARMACEUTICALS
  Company Number: JP-ASTRAZENECA-240105919_013120_P_1

PATIENT
  Age: 75 Year
  Sex: Male
  Weight: 66 kg

DRUGS (18)
  1. DURVALUMAB [Suspect]
     Active Substance: DURVALUMAB
     Indication: Non-small cell lung cancer
     Dosage: 1500 MILLIGRAM, Q3W
     Dates: start: 20240109, end: 20240221
  2. TREMELIMUMAB [Suspect]
     Active Substance: TREMELIMUMAB
     Indication: Non-small cell lung cancer
     Dosage: 75 MILLIGRAM, Q3W
     Dates: start: 20240109, end: 20240221
  3. CARBOPLATIN [Concomitant]
     Active Substance: CARBOPLATIN
     Indication: Non-small cell lung cancer
  4. CARBOPLATIN [Concomitant]
     Active Substance: CARBOPLATIN
  5. ABRAXANE [Concomitant]
     Active Substance: PACLITAXEL
     Indication: Non-small cell lung cancer
  6. ABRAXANE [Concomitant]
     Active Substance: PACLITAXEL
  7. APREPITANT [Concomitant]
     Active Substance: APREPITANT
  8. APREPITANT [Concomitant]
     Active Substance: APREPITANT
  9. DEXTROMETHORPHAN HYDROBROMIDE [Concomitant]
     Active Substance: DEXTROMETHORPHAN HYDROBROMIDE
  10. FAMOTIDINE [Concomitant]
     Active Substance: FAMOTIDINE
  11. CALCIUM CARBONATE\CHOLECALCIFEROL\MAGNESIUM CARBONATE [Concomitant]
     Active Substance: CALCIUM CARBONATE\CHOLECALCIFEROL\MAGNESIUM CARBONATE
  12. CALCIUM CARBONATE\CHOLECALCIFEROL\MAGNESIUM CARBONATE [Concomitant]
     Active Substance: CALCIUM CARBONATE\CHOLECALCIFEROL\MAGNESIUM CARBONATE
  13. ALLELOCK [Concomitant]
     Active Substance: OLOPATADINE HYDROCHLORIDE
  14. ALLELOCK [Concomitant]
     Active Substance: OLOPATADINE HYDROCHLORIDE
  15. MAGNESIUM OXIDE [Concomitant]
     Active Substance: MAGNESIUM OXIDE
  16. MAGNESIUM OXIDE [Concomitant]
     Active Substance: MAGNESIUM OXIDE
  17. CHLORPROMAZINE [Concomitant]
     Active Substance: CHLORPROMAZINE
  18. CHLORPROMAZINE [Concomitant]
     Active Substance: CHLORPROMAZINE

REACTIONS (1)
  - Cytokine release syndrome [Recovered/Resolved]

NARRATIVE: CASE EVENT DATE: 20240222
